FAERS Safety Report 9179887 (Version 1)
Quarter: 2012Q4

REPORT INFORMATION
  Report Type: Report from Study
  Country: CA (occurrence: CA)
  Receive Date: 20121029
  Receipt Date: 20121029
  Transmission Date: 20130627
  Serious: Yes (Other)
  Sender: FDA-Public Use
  Company Number: CA-JNJFOC-20121008901

PATIENT
  Sex: Male
  Weight: 55 kg

DRUGS (3)
  1. REMICADE [Suspect]
     Indication: CROHN^S DISEASE
     Dosage: 19th infusion
     Route: 042
     Dates: start: 20121005, end: 20121015
  2. REMICADE [Suspect]
     Indication: CROHN^S DISEASE
     Route: 042
     Dates: start: 201005
  3. METHOTREXATE [Concomitant]
     Dosage: 5 mg
     Route: 048

REACTIONS (1)
  - Ear infection [Not Recovered/Not Resolved]
